FAERS Safety Report 12382746 (Version 1)
Quarter: 2016Q2

REPORT INFORMATION
  Report Type: Spontaneous
  Country: US (occurrence: US)
  Receive Date: 20160518
  Receipt Date: 20160518
  Transmission Date: 20160815
  Serious: No
  Sender: FDA-Public Use
  Company Number: US-CONCORDIA PHARMACEUTICALS INC.-CO-UL-US-2015-002

PATIENT
  Sex: Female

DRUGS (1)
  1. ULESFIA [Suspect]
     Active Substance: BENZYL ALCOHOL
     Indication: LICE INFESTATION
     Route: 061

REACTIONS (1)
  - Drug ineffective [Unknown]
